FAERS Safety Report 14983960 (Version 1)
Quarter: 2018Q2

REPORT INFORMATION
  Report Type: Spontaneous
  Country: US (occurrence: US)
  Receive Date: 20180607
  Receipt Date: 20180607
  Transmission Date: 20180711
  Serious: Yes (Death, Other)
  Sender: FDA-Public Use
  Company Number: US-AMGEN-USASP2018076417

PATIENT
  Age: 64 Year
  Sex: Female

DRUGS (3)
  1. CARFILZOMIB [Suspect]
     Active Substance: CARFILZOMIB
     Indication: PULMONARY HYPERTENSION
  2. CARFILZOMIB [Suspect]
     Active Substance: CARFILZOMIB
     Indication: SYSTEMIC SCLEROSIS PULMONARY
     Dosage: UNK
     Route: 065
  3. CARFILZOMIB [Suspect]
     Active Substance: CARFILZOMIB
     Indication: INTERSTITIAL LUNG DISEASE

REACTIONS (2)
  - Death [Fatal]
  - Off label use [Unknown]
